FAERS Safety Report 9342601 (Version 2)
Quarter: 2013Q3

REPORT INFORMATION
  Report Type: Spontaneous
  Country: US (occurrence: US)
  Receive Date: 20130611
  Receipt Date: 20130731
  Transmission Date: 20140515
  Serious: Yes (Other)
  Sender: FDA-Public Use
  Company Number: US-ALLERGAN-1304206US

PATIENT
  Age: 82 Year
  Sex: Female

DRUGS (2)
  1. BOTOX [Suspect]
     Indication: BLEPHAROSPASM
     Dosage: 17.5 UNITS, SINGLE
     Dates: start: 201301, end: 201301
  2. BOTOX [Suspect]
     Indication: LACRIMATION INCREASED
     Dosage: 25 UNITS, SINGLE
     Dates: start: 20120712, end: 20120712

REACTIONS (11)
  - Ophthalmoplegia [Unknown]
  - Corneal abrasion [Recovering/Resolving]
  - Trichiasis [Recovered/Resolved]
  - Eye pain [Recovered/Resolved]
  - Corneal irritation [Recovered/Resolved]
  - Blepharospasm [Not Recovered/Not Resolved]
  - Entropion [Unknown]
  - Off label use [Unknown]
  - Lacrimation increased [Not Recovered/Not Resolved]
  - Drug ineffective [Unknown]
  - Drug ineffective [Unknown]
